FAERS Safety Report 8120879-X (Version None)
Quarter: 2012Q1

REPORT INFORMATION
  Report Type: 
  Country: None (occurrence: None)
  Receive Date: 20120203
  Receipt Date: 20120125
  Transmission Date: 20120608
  Serious: Yes (Other)
  Sender: FDA-Public Use
  Company Number: 2011HGS-002810

PATIENT
  Age: 49 Year
  Sex: Female
  Weight: 105.6881 kg

DRUGS (12)
  1. MOTRIN [Concomitant]
  2. BENLYSTA [Suspect]
     Indication: SYSTEMIC LUPUS ERYTHEMATOSUS
     Dosage: 1 IN 28 D, INTRAVENOUS DRIP
     Route: 041
     Dates: start: 20110601
  3. ZANTAC [Concomitant]
  4. MOBIC [Concomitant]
  5. NEURONTIN [Concomitant]
  6. DIAZIDE (GLICLAZIDE) (GLICLAZIDE) [Concomitant]
  7. GLUCOSAMINE CHONDROITIN (GLUCOSAMINE W/CHONDROITIN SULFATE) (GLUCOSAMI [Concomitant]
  8. ATIVAN [Concomitant]
  9. CALCIUM WITH VITAMIN D (CALCIUM WITH VITAMIN D /01233101/ (ERGOCALCIFE [Concomitant]
  10. ZOCOR [Concomitant]
  11. ROBAXIN (METHOCARBAMOL) (METHOCARBAMOL) [Concomitant]
  12. PSYLLIUM MUSK (PLANTAGO OVATA HUSK) (PLANTAGO OVATA HUSK) [Concomitant]

REACTIONS (5)
  - FATIGUE [None]
  - SINUSITIS [None]
  - LYMPHADENOPATHY [None]
  - ARTHRITIS [None]
  - CHRONIC LYMPHOCYTIC LEUKAEMIA [None]
